FAERS Safety Report 6699457-5 (Version None)
Quarter: 2010Q2

REPORT INFORMATION
  Report Type: 
  Country: None (occurrence: None)
  Receive Date: 20100426
  Receipt Date: 20100409
  Transmission Date: 20101027
  Serious: Yes (Other)
  Sender: FDA-Public Use
  Company Number: 2010001329

PATIENT
  Sex: Female
  Weight: 73.1 kg

DRUGS (3)
  1. ERLOTINIB (ERLOTINIB) (ERLOTINIB) [Suspect]
     Indication: ADRENOCORTICAL CARCINOMA
     Dosage: (75 MG, QD)
     Dates: start: 20100325, end: 20100402
  2. GDC-0449 [Suspect]
     Indication: ADRENOCORTICAL CARCINOMA
     Dosage: (150 MG, QD), ORAL
     Route: 048
     Dates: start: 20100325, end: 20100402
  3. GEMCITABINE [Suspect]
     Indication: ADRENOCORTICAL CARCINOMA
     Dosage: (1000 MG/M2, DAYS 1, 8, 15, 22, 29, 36 AND 43) INTRAVENOUS
     Route: 042
     Dates: start: 20100325, end: 20100325

REACTIONS (1)
  - RETINAL VEIN THROMBOSIS [None]
